FAERS Safety Report 18467413 (Version 1)
Quarter: 2020Q4

REPORT INFORMATION
  Report Type: Spontaneous
  Country: US (occurrence: US)
  Receive Date: 20201104
  Receipt Date: 20201104
  Transmission Date: 20210114
  Serious: Yes (Hospitalization)
  Sender: FDA-Public Use
  Company Number: None

PATIENT
  Age: 57 Year
  Sex: Male
  Weight: 88 kg

DRUGS (2)
  1. IOPROMIDE (IOPROMIDE 370MGI/ML/INJ) [Suspect]
     Active Substance: IOPROMIDE
     Indication: CARDIOVASCULAR DISORDER
     Dates: start: 20200925, end: 20200925
  2. IOPROMIDE (IOPROMIDE 370MGI/ML/INJ) [Suspect]
     Active Substance: IOPROMIDE
     Indication: SURGERY
     Dates: start: 20200925, end: 20200925

REACTIONS (5)
  - Hypotension [None]
  - Contrast media reaction [None]
  - Eye swelling [None]
  - Rash [None]
  - Loss of consciousness [None]

NARRATIVE: CASE EVENT DATE: 20200930
